FAERS Safety Report 25294722 (Version 1)
Quarter: 2025Q2

REPORT INFORMATION
  Report Type: Spontaneous
  Country: US (occurrence: US)
  Receive Date: 20250511
  Receipt Date: 20250511
  Transmission Date: 20250717
  Serious: No
  Sender: SANOFI AVENTIS
  Company Number: US-SA-2025SA132009

PATIENT
  Age: 62 Year
  Sex: Female
  Weight: 61.36 kg

DRUGS (9)
  1. DUPIXENT [Suspect]
     Active Substance: DUPILUMAB
     Indication: Dermatitis atopic
     Dosage: 300 MG, QOW
     Route: 058
     Dates: start: 20250220
  2. TRELEGY ELLIPTA [Concomitant]
     Active Substance: FLUTICASONE FUROATE\UMECLIDINIUM BROMIDE\VILANTEROL TRIFENATATE
  3. TERIPARATIDE [Concomitant]
     Active Substance: TERIPARATIDE
  4. DEXLANSOPRAZOLE [Concomitant]
     Active Substance: DEXLANSOPRAZOLE
  5. BUPROPION [Concomitant]
     Active Substance: BUPROPION
  6. DULOXETINE [Concomitant]
     Active Substance: DULOXETINE
  7. LORAZEPAM [Concomitant]
     Active Substance: LORAZEPAM
  8. AMLODIPINE BESYLATE [Concomitant]
     Active Substance: AMLODIPINE BESYLATE
  9. CLOBETASOL PROPIONATE [Concomitant]
     Active Substance: CLOBETASOL PROPIONATE

REACTIONS (1)
  - Injection site injury [Not Recovered/Not Resolved]

NARRATIVE: CASE EVENT DATE: 20250501
